FAERS Safety Report 5845932-2 (Version None)
Quarter: 2008Q3

REPORT INFORMATION
  Report Type: 
  Country: None (occurrence: None)
  Receive Date: 20080731
  Receipt Date: 20080604
  Transmission Date: 20090109
  Serious: No
  Sender: FDA-Public Use
  Company Number: US200806001284

PATIENT
  Age: 75 Year
  Sex: Female
  Weight: 86.2 kg

DRUGS (6)
  1. BYETTA [Suspect]
     Indication: TYPE 2 DIABETES MELLITUS
     Dosage: 5 UG, 2/D, SUBCUTANEOUS ; 10 UG, 2/D, SUBCUTANEOUS ; 5 UG, 2/D, SUBCUTANEOUS
     Route: 058
     Dates: start: 20080101, end: 20080301
  2. BYETTA [Suspect]
     Indication: TYPE 2 DIABETES MELLITUS
     Dosage: 5 UG, 2/D, SUBCUTANEOUS ; 10 UG, 2/D, SUBCUTANEOUS ; 5 UG, 2/D, SUBCUTANEOUS
     Route: 058
     Dates: start: 20080301, end: 20080501
  3. BYETTA [Suspect]
     Indication: TYPE 2 DIABETES MELLITUS
     Dosage: 5 UG, 2/D, SUBCUTANEOUS ; 10 UG, 2/D, SUBCUTANEOUS ; 5 UG, 2/D, SUBCUTANEOUS
     Route: 058
     Dates: start: 20080501
  4. GLUCOPHAGE /USA/ (METFORMIN HYDROCHLORIDE) [Concomitant]
  5. GLUCOTROL [Concomitant]
  6. ACTOS /USA/ (PIOGLITAZONE HYDROCHLORIDE) [Concomitant]

REACTIONS (8)
  - ASTHENIA [None]
  - BLOOD GLUCOSE INCREASED [None]
  - DECREASED APPETITE [None]
  - DIZZINESS [None]
  - DRUG EFFECT DECREASED [None]
  - NAUSEA [None]
  - TREMOR [None]
  - VOMITING [None]
